FAERS Safety Report 9098240 (Version 1)
Quarter: 2013Q1

REPORT INFORMATION
  Report Type: Spontaneous
  Country: FR (occurrence: FR)
  Receive Date: 20130213
  Receipt Date: 20130213
  Transmission Date: 20140127
  Serious: Yes (Other)
  Sender: FDA-Public Use
  Company Number: PHHY2013FR001171

PATIENT
  Sex: Female

DRUGS (9)
  1. LEELOO [Suspect]
     Indication: CONTRACEPTION
     Route: 048
     Dates: start: 20130110
  2. DEPAKOTE [Concomitant]
     Dosage: 3 DF, UNK
     Dates: start: 20121217
  3. RISPERDAL [Concomitant]
     Dosage: 1 DF, UNK
  4. SEROPLEX [Concomitant]
     Dosage: 1 DF, UNK
  5. TEMESTA [Concomitant]
     Dosage: 1 DF, UNK
  6. THERALENE [Concomitant]
     Dosage: 5 MG, UNK
  7. INEXIUM//ESOMEPRAZOLE MAGNESIUM [Concomitant]
  8. CLARITYNE [Concomitant]
  9. ESBERIVEN FORTE [Concomitant]

REACTIONS (1)
  - Drug dose omission [Recovered/Resolved]
